FAERS Safety Report 9677734 (Version 3)
Quarter: 2014Q1

REPORT INFORMATION
  Report Type: Spontaneous
  Country: BE (occurrence: BE)
  Receive Date: 20131108
  Receipt Date: 20140205
  Transmission Date: 20141002
  Serious: Yes (Death, Hospitalization)
  Sender: FDA-Public Use
  Company Number: BE-CELGENEUS-013-21880-13104873

PATIENT
  Age: 84 Year
  Sex: Male

DRUGS (5)
  1. REVLIMID [Suspect]
     Indication: 5Q MINUS SYNDROME
     Dosage: 5 MILLIGRAM
     Route: 048
     Dates: start: 20110919, end: 20130503
  2. PLAVIX [Concomitant]
     Indication: CAROTID ARTERY STENOSIS
     Route: 065
  3. EMCONCOR [Concomitant]
     Indication: HYPERTENSION
     Dosage: 2.5 MILLIGRAM
     Route: 065
  4. BETAHISTINE [Concomitant]
     Indication: VERTIGO
     Dosage: 48 MILLIGRAM
     Route: 065
  5. ARICEPT [Concomitant]
     Indication: DEMENTIA ALZHEIMER^S TYPE
     Dosage: 5 MILLIGRAM
     Route: 065
     Dates: start: 201301

REACTIONS (2)
  - General physical health deterioration [Fatal]
  - Pneumonia [Fatal]
